FAERS Safety Report 5564608-2 (Version None)
Quarter: 2007Q4

REPORT INFORMATION
  Report Type: 
  Country: None (occurrence: None)
  Receive Date: 20071218
  Receipt Date: 20071211
  Transmission Date: 20080405
  Serious: Yes (Hospitalization)
  Sender: FDA-Public Use
  Company Number: US-KINGPHARMUSA00001-K200701609

PATIENT

DRUGS (5)
  1. ALTACE [Suspect]
     Dates: end: 20020101
  2. ALTACE [Suspect]
     Dosage: 2.5 MG, UNK
     Dates: start: 20020101
  3. ACTOS [Suspect]
     Dosage: 45 MG, UNK
     Dates: start: 20000401, end: 20070101
  4. HUMALOG MIX 50/50 /01500801/ [Concomitant]
     Dosage: SLIDING SCALE, QAM
     Dates: start: 20070101
  5. HUMALOG MIX 70/30 /01500801/ [Concomitant]
     Dosage: SLIDING SCALE, QPM
     Dates: start: 20070101

REACTIONS (3)
  - BLOOD PRESSURE SYSTOLIC INCREASED [None]
  - BRADYCARDIA [None]
  - CARDIAC DISORDER [None]
